FAERS Safety Report 9643552 (Version 3)
Quarter: 2015Q4

REPORT INFORMATION
  Report Type: Spontaneous
  Country: FR (occurrence: FR)
  Receive Date: 20131024
  Receipt Date: 20151028
  Transmission Date: 20160305
  Serious: Yes (Other)
  Sender: FDA-Public Use
  Company Number: FR-TEVA-439987ISR

PATIENT
  Age: 75 Year
  Sex: Female

DRUGS (5)
  1. LEVODOPA 200 MG/CARBIDOPA 50 MG/ENTACAPONE 200 MG [Suspect]
     Active Substance: CARBIDOPA\ENTACAPONE\LEVODOPA
     Dosage: 1 DOSAGE FORM = LEVODOPA 200 MG + CARBIDOPA 50 MG + ENTACAPONE 200 MG
  2. SERTRALINE [Interacting]
     Active Substance: SERTRALINE HYDROCHLORIDE
     Dosage: 100 MILLIGRAM DAILY;
  3. AMANTADINE 100MG [Interacting]
     Active Substance: AMANTADINE
  4. AZILECT [Interacting]
     Active Substance: RASAGILINE MESYLATE
     Dosage: 1 MILLIGRAM DAILY;
  5. SERTRALINE [Interacting]
     Active Substance: SERTRALINE HYDROCHLORIDE
     Indication: MAJOR DEPRESSION
     Dosage: 50 MILLIGRAM DAILY;

REACTIONS (4)
  - Dehydration [Recovered/Resolved]
  - Renal failure [Recovered/Resolved]
  - Serotonin syndrome [Recovered/Resolved]
  - Drug interaction [Recovered/Resolved]
